FAERS Safety Report 21178755 (Version 8)
Quarter: 2023Q4

REPORT INFORMATION
  Report Type: Report from Study
  Country: CO (occurrence: CO)
  Receive Date: 20220805
  Receipt Date: 20231012
  Transmission Date: 20240110
  Serious: Yes (Hospitalization, Other)
  Sender: FDA-Public Use
  Company Number: CO-NOVARTISPH-NVSC2022CO177088

PATIENT
  Sex: Female

DRUGS (3)
  1. GILENYA [Suspect]
     Active Substance: FINGOLIMOD HYDROCHLORIDE
     Indication: Multiple sclerosis
     Dosage: 0.5 MG, QD (BY MOUTH)
     Route: 048
  2. GILENYA [Suspect]
     Active Substance: FINGOLIMOD HYDROCHLORIDE
     Dosage: UNK
     Route: 065
     Dates: start: 2021
  3. GILENYA [Suspect]
     Active Substance: FINGOLIMOD HYDROCHLORIDE
     Dosage: UNK
     Route: 065
     Dates: end: 20230825

REACTIONS (14)
  - Migraine [Unknown]
  - Malaise [Unknown]
  - Vomiting [Unknown]
  - Headache [Unknown]
  - Blindness [Recovered/Resolved]
  - Multiple sclerosis relapse [Unknown]
  - Neoplasm malignant [Recovered/Resolved]
  - Cyst [Unknown]
  - Acne [Unknown]
  - Skin discolouration [Unknown]
  - Ill-defined disorder [Unknown]
  - Illness [Unknown]
  - Eye disorder [Unknown]
  - Headache [Recovered/Resolved]
